FAERS Safety Report 4944794-5 (Version None)
Quarter: 2006Q1

REPORT INFORMATION
  Report Type: 
  Country: None (occurrence: None)
  Receive Date: 20060315
  Receipt Date: 20011003
  Transmission Date: 20060701
  Serious: Yes (Hospitalization, Other)
  Sender: FDA-Public Use
  Company Number: US-MERCK-01100538

PATIENT
  Age: 76 Year
  Sex: Female
  Weight: 64 kg

DRUGS (1)
  1. VIOXX [Suspect]
     Indication: ARTHRITIS
     Route: 048

REACTIONS (11)
  - ASTHENIA [None]
  - DEPRESSION [None]
  - DIALYSIS [None]
  - FEMUR FRACTURE [None]
  - GRAND MAL CONVULSION [None]
  - HIP FRACTURE [None]
  - MENTAL STATUS CHANGES [None]
  - MYOCARDIAL INFARCTION [None]
  - RENAL DISORDER [None]
  - RENAL FAILURE [None]
  - TRANSIENT ISCHAEMIC ATTACK [None]
